FAERS Safety Report 8680138 (Version 2)
Quarter: 2015Q2

REPORT INFORMATION
  Report Type: Report from Study
  Country: US (occurrence: US)
  Receive Date: 20120724
  Receipt Date: 20150626
  Transmission Date: 20150821
  Serious: Yes (Death)
  Sender: FDA-Public Use
  Company Number: US-ROCHE-1089309

PATIENT
  Sex: Female

DRUGS (9)
  1. ACTIVASE [Suspect]
     Active Substance: ALTEPLASE
     Indication: CARDIOGENIC SHOCK
     Route: 065
  2. ACTIVASE [Suspect]
     Active Substance: ALTEPLASE
     Indication: CORONARY ARTERY BYPASS
  3. LIDOCAINE. [Concomitant]
     Active Substance: LIDOCAINE
     Route: 065
  4. ATROPINE [Concomitant]
     Active Substance: ATROPINE
  5. EPINEPHRINE. [Concomitant]
     Active Substance: EPINEPHRINE
  6. ACTIVASE [Suspect]
     Active Substance: ALTEPLASE
     Indication: ACUTE MYOCARDIAL INFARCTION
  7. DOPAMINE [Concomitant]
     Active Substance: DOPAMINE\DOPAMINE HYDROCHLORIDE
  8. ISUPREL [Concomitant]
     Active Substance: ISOPROTERENOL HYDROCHLORIDE
  9. SODIUM BICARBONATE. [Concomitant]
     Active Substance: SODIUM BICARBONATE

REACTIONS (8)
  - Bradycardia [Unknown]
  - Syncope [Unknown]
  - Atrioventricular block second degree [Unknown]
  - Ventricular extrasystoles [Unknown]
  - Death [Fatal]
  - Depressed level of consciousness [Unknown]
  - Pulmonary vascular disorder [Unknown]
  - Lethargy [Unknown]
